FAERS Safety Report 9717682 (Version 1)
Quarter: 2013Q4

REPORT INFORMATION
  Report Type: Spontaneous
  Country: US (occurrence: None)
  Receive Date: 20131125
  Receipt Date: 20131125
  Transmission Date: 20140711
  Serious: Yes (Other)
  Sender: FDA-Public Use
  Company Number: A1050008A

PATIENT
  Age: 20 Year
  Sex: Female

DRUGS (2)
  1. STANNOUS FLUORIDE [Suspect]
     Indication: SENSITIVITY OF TEETH
     Route: 004
     Dates: start: 20131109, end: 20131114
  2. SODIUM FLUORIDE + POTASSI [Concomitant]

REACTIONS (7)
  - Chemical injury [None]
  - Glossodynia [None]
  - Tongue disorder [None]
  - Tongue discolouration [None]
  - Tongue blistering [None]
  - Oral mucosal blistering [None]
  - Skin exfoliation [None]
